FAERS Safety Report 9624613 (Version 2)
Quarter: 2013Q4

REPORT INFORMATION
  Report Type: Spontaneous
  Country: JP (occurrence: JP)
  Receive Date: 20131015
  Receipt Date: 20131015
  Transmission Date: 20140711
  Serious: Yes (Life-Threatening, Other)
  Sender: FDA-Public Use
  Company Number: JP-PFIZER INC-2013251141

PATIENT
  Age: 64 Year
  Sex: Male
  Weight: 43 kg

DRUGS (10)
  1. LYRICA [Suspect]
     Indication: HYPOAESTHESIA
     Dosage: 25 MG, 2X/DAY
     Route: 048
     Dates: start: 20120730, end: 20120805
  2. LYRICA [Suspect]
     Dosage: 75 MG, DAILY (50 MG IN THE MORNING/25 MG IN THE EVENING)
     Route: 048
     Dates: start: 20120806, end: 20120817
  3. LYRICA [Suspect]
     Dosage: 100 MG, DAILY (75 MG IN THE MORNING AND 25 MG IN THE EVENING)
     Route: 048
     Dates: start: 20120818, end: 20120826
  4. LYRICA [Suspect]
     Dosage: 75 MG, 2X/DAY
     Route: 048
     Dates: start: 20120827, end: 20121227
  5. LYRICA [Suspect]
     Dosage: 225 MG, DAILY(75 MG IN THE MORNING/150 MG IN THE EVENING)
     Route: 048
     Dates: start: 20121228, end: 20130111
  6. LYRICA [Suspect]
     Dosage: 150 MG, 2X/DAY
     Route: 048
     Dates: start: 20130112, end: 20130519
  7. LYRICA [Suspect]
     Dosage: 375 MG, DAILY(75 MG AT NOON/150 MG IN THE MORNING AND THE EVENING)
     Route: 048
     Dates: start: 20130520, end: 20130625
  8. LYRICA [Suspect]
     Dosage: 225 MG, 3X/DAY
     Route: 048
     Dates: start: 20130626, end: 20130811
  9. LYRICA [Suspect]
     Dosage: 150 MG, 2X/DAY
     Route: 048
     Dates: start: 20130812, end: 20130825
  10. LYRICA [Suspect]
     Dosage: 75 MG, 2X/DAY
     Route: 048
     Dates: start: 20130826, end: 20130926

REACTIONS (4)
  - Cardiac failure [Not Recovered/Not Resolved]
  - Arrhythmia [Recovered/Resolved]
  - Hypotension [Recovered/Resolved]
  - Malaise [Not Recovered/Not Resolved]
